FAERS Safety Report 5525246-0 (Version None)
Quarter: 2007Q4

REPORT INFORMATION
  Report Type: 
  Country: None (occurrence: None)
  Receive Date: 20071126
  Receipt Date: 20071121
  Transmission Date: 20080405
  Serious: Yes (Death, Hospitalization)
  Sender: FDA-Public Use
  Company Number: FR-BRISTOL-MYERS SQUIBB COMPANY-13990056

PATIENT
  Age: 13 Year
  Sex: Male

DRUGS (3)
  1. LOPRIL TABS 25 MG [Suspect]
     Dates: start: 20070601, end: 20070904
  2. ALDACTONE [Suspect]
     Dates: start: 20070601, end: 20070904
  3. ASPEGIC 1000 [Concomitant]

REACTIONS (4)
  - HYPERKALAEMIA [None]
  - HYPONATRAEMIA [None]
  - MULTI-ORGAN FAILURE [None]
  - RENAL FAILURE [None]
